FAERS Safety Report 10654469 (Version 1)
Quarter: 2014Q4

REPORT INFORMATION
  Report Type: Spontaneous
  Country: US (occurrence: None)
  Receive Date: 20141215
  Receipt Date: 20141215
  Transmission Date: 20150529
  Serious: Yes (Hospitalization)
  Sender: FDA-Public Use
  Company Number: None

PATIENT
  Age: 8 Year
  Sex: Female
  Weight: 18 kg

DRUGS (1)
  1. MELPHALAN [Suspect]
     Active Substance: MELPHALAN
     Dates: end: 20131104

REACTIONS (14)
  - Respiratory distress [None]
  - Systemic inflammatory response syndrome [None]
  - Pneumothorax [None]
  - Septic shock [None]
  - Pulmonary mass [None]
  - Septic embolus [None]
  - Pleural effusion [None]
  - Pulmonary oedema [None]
  - Enterovirus test positive [None]
  - Pulmonary haemorrhage [None]
  - Pneumonia [None]
  - Human rhinovirus test positive [None]
  - Pseudomonas test positive [None]
  - Atelectasis [None]

NARRATIVE: CASE EVENT DATE: 20140109
